FAERS Safety Report 14205757 (Version 1)
Quarter: 2017Q4

REPORT INFORMATION
  Report Type: Spontaneous
  Country: US (occurrence: US)
  Receive Date: 20171120
  Receipt Date: 20171120
  Transmission Date: 20180321
  Serious: Yes (Hospitalization)
  Sender: FDA-Public Use
  Company Number: US-PROCTER+GAMBLE-GS17127615

PATIENT
  Age: 9 Month

DRUGS (1)
  1. VICKS VAPORUB [Suspect]
     Active Substance: CAMPHOR (SYNTHETIC)\EUCALYPTUS OIL\MENTHOL
     Dosage: UNK
     Route: 061
     Dates: start: 1963

REACTIONS (2)
  - Croup infectious [Recovered/Resolved]
  - Pneumonia [Recovered/Resolved]

NARRATIVE: CASE EVENT DATE: 1963
